FAERS Safety Report 7258210-4 (Version None)
Quarter: 2011Q1

REPORT INFORMATION
  Report Type: 
  Country: None (occurrence: None)
  Receive Date: 20110129
  Receipt Date: 20100727
  Transmission Date: 20110831
  Serious: No
  Sender: FDA-Public Use
  Company Number: US-ABBOTT-10P-163-0660179-00

PATIENT
  Age: 52 Year
  Sex: Female

DRUGS (11)
  1. FOLIC ACID [Concomitant]
  2. VITAMIN D [Concomitant]
  3. REQUIP [Concomitant]
     Indication: RESTLESS LEGS SYNDROME
     Dosage: AT BEDTIME
  4. METHOTREXATE [Concomitant]
     Dosage: 3 TABLETS ONCE A WEEK
  5. HUMIRA [Suspect]
  6. WELLBUTRIN SR [Concomitant]
     Indication: DEPRESSION
  7. LISINOPRIL [Concomitant]
     Indication: HYPERTENSION
  8. SINGULAIR [Concomitant]
     Indication: HYPERSENSITIVITY
  9. DAILY VITAMIN AND SUPPLEMENT USE [Concomitant]
  10. PLAQUENIL [Concomitant]
     Indication: RHEUMATOID ARTHRITIS
  11. ALLERGY SHOTS [Concomitant]

REACTIONS (2)
  - WRONG TECHNIQUE IN DRUG USAGE PROCESS [None]
  - INJECTION SITE HAEMORRHAGE [None]
